FAERS Safety Report 8616159-6 (Version None)
Quarter: 2012Q3

REPORT INFORMATION
  Report Type: 
  Country: None (occurrence: None)
  Receive Date: 20120823
  Receipt Date: 20120815
  Transmission Date: 20120928
  Serious: Yes (Hospitalization, Disabling, Other)
  Sender: FDA-Public Use
  Company Number: US-009507513-1206USA04635

PATIENT

DRUGS (5)
  1. VITAMINS (UNSPECIFIED) [Concomitant]
  2. BONIVA [Suspect]
     Indication: OSTEOPOROSIS
     Dosage: UNK, QM
     Dates: start: 20060101
  3. FOSAMAX [Suspect]
     Indication: OSTEOPOROSIS
     Dosage: 70 MG, QW
     Route: 048
     Dates: start: 19960101, end: 20060101
  4. FOSAMAX [Suspect]
     Indication: OSTEOPOROSIS PROPHYLAXIS
  5. FOSAMAX [Suspect]
     Indication: MULTIPLE FRACTURES

REACTIONS (8)
  - LOWER LIMB FRACTURE [None]
  - FRACTURE [None]
  - ACCIDENT [None]
  - DEPRESSION [None]
  - FALL [None]
  - LOW TURNOVER OSTEOPATHY [None]
  - FEMUR FRACTURE [None]
  - INTRAMEDULLARY ROD INSERTION [None]
